FAERS Safety Report 9349161 (Version 2)
Quarter: 2013Q4

REPORT INFORMATION
  Report Type: Spontaneous
  Country: US (occurrence: US)
  Receive Date: 20130614
  Receipt Date: 20131203
  Transmission Date: 20140711
  Serious: Yes (Hospitalization, Other)
  Sender: FDA-Public Use
  Company Number: US-BAYER-2013-071937

PATIENT
  Age: 44 Year
  Sex: Female

DRUGS (8)
  1. YASMIN [Suspect]
  2. COUMADIN [Concomitant]
     Indication: DEEP VEIN THROMBOSIS
  3. LEXAPRO [Concomitant]
     Dosage: 20 MG, UNK
  4. KLONOPIN [Concomitant]
     Dosage: 0.5 MG, UNK
  5. HYDROCORTISONE [Concomitant]
     Dosage: 1 %, 28.35 GM
  6. VICODIN ES [Concomitant]
  7. MULTIVITAMIN [Concomitant]
  8. B12 [Concomitant]

REACTIONS (2)
  - Cholecystitis chronic [Recovered/Resolved]
  - Deep vein thrombosis [Recovered/Resolved]
